FAERS Safety Report 7957667-0 (Version None)
Quarter: 2011Q4

REPORT INFORMATION
  Report Type: 
  Country: None (occurrence: None)
  Receive Date: 20111205
  Receipt Date: 20111122
  Transmission Date: 20120403
  Serious: Yes (Hospitalization, Other)
  Sender: FDA-Public Use
  Company Number: PHHY2011FR103294

PATIENT
  Sex: Female

DRUGS (12)
  1. OXAZEPAM [Concomitant]
     Dosage: 10 MG, QID
  2. LITHIUM CARBONATE [Concomitant]
     Dosage: 2 DF, BID
  3. CRESTOR [Concomitant]
     Dosage: 5 MG, EVERY TWO DAYS
  4. EXELON [Suspect]
     Dosage: 9.5 MG/ 24H
     Route: 062
     Dates: start: 20110901, end: 20111001
  5. XENAZINE [Suspect]
     Dosage: 25 MG, BID
     Dates: start: 20071001, end: 20100301
  6. DITROPAN [Suspect]
     Indication: DYSKINESIA
     Dosage: 5 MG, TID
     Dates: start: 20071101, end: 20111006
  7. AZILECT [Suspect]
     Indication: PARKINSONISM
     Dosage: 30 MG, QD
     Dates: start: 20110701, end: 20111001
  8. LEVOTHYROXINE SODIUM [Concomitant]
     Dosage: 100 UG, UNK
  9. MODOPAR [Concomitant]
     Dosage: 250 MG, BID
  10. CYMBALTA [Suspect]
     Indication: AFFECTIVE DISORDER
     Dosage: 120 MG, QD
     Dates: start: 20090101, end: 20111001
  11. MODOPAR [Concomitant]
     Dosage: 125 MG, BID
  12. VALSARTAN [Concomitant]
     Dosage: 100 MG DAILY

REACTIONS (7)
  - GENERAL PHYSICAL HEALTH DETERIORATION [None]
  - TREMOR [None]
  - CONFUSIONAL STATE [None]
  - PARKINSON'S DISEASE [None]
  - COGNITIVE DISORDER [None]
  - DYSARTHRIA [None]
  - TOXIC ENCEPHALOPATHY [None]
